FAERS Safety Report 10787362 (Version 3)
Quarter: 2015Q2

REPORT INFORMATION
  Report Type: Report from Study
  Country: JP (occurrence: JP)
  Receive Date: 20150212
  Receipt Date: 20150612
  Transmission Date: 20150821
  Serious: Yes (Other)
  Sender: FDA-Public Use
  Company Number: JP-AMGEN-JPNSP2015012641

PATIENT
  Age: 65 Year
  Sex: Female
  Weight: 46 kg

DRUGS (6)
  1. ALESION [Concomitant]
     Active Substance: EPINASTINE HYDROCHLORIDE
     Dosage: UNK
     Route: 065
  2. VIVIANT [Concomitant]
     Active Substance: BAZEDOXIFENE
     Dosage: 20 MG, QD
     Route: 048
     Dates: start: 20131120, end: 20140312
  3. DENOSUMAB [Suspect]
     Active Substance: DENOSUMAB
     Indication: OSTEOPOROSIS
     Dosage: 60 MG, UNK
     Route: 058
     Dates: start: 20141126
  4. PARIET [Concomitant]
     Active Substance: RABEPRAZOLE SODIUM
     Dosage: UNK
     Route: 065
  5. EDIROL [Concomitant]
     Active Substance: ELDECALCITOL
     Dosage: 0.75 MUG, QD
     Route: 048
  6. HERBESSER R100 [Concomitant]
     Dosage: UNK
     Route: 065

REACTIONS (4)
  - Arthralgia [Recovered/Resolved]
  - Erythema [Recovering/Resolving]
  - Toothache [Recovering/Resolving]
  - Tooth abscess [Recovering/Resolving]

NARRATIVE: CASE EVENT DATE: 20141202
